FAERS Safety Report 6049459-7 (Version None)
Quarter: 2009Q1

REPORT INFORMATION
  Report Type: 
  Country: None (occurrence: None)
  Receive Date: 20090121
  Receipt Date: 20090106
  Transmission Date: 20090719
  Serious: Yes (Other)
  Sender: FDA-Public Use
  Company Number: 6048031

PATIENT
  Age: 68 Year
  Sex: Male

DRUGS (2)
  1. BISOPROLOL FUMARATE [Suspect]
     Indication: HYPERTENSION
     Dosage: 5 MG ORAL
     Route: 048
     Dates: start: 19980101
  2. METRONIDAZOLE [Concomitant]

REACTIONS (3)
  - HYPERTENSION [None]
  - NIGHTMARE [None]
  - SLEEP DISORDER [None]
